FAERS Safety Report 22148844 (Version 1)
Quarter: 2023Q1

REPORT INFORMATION
  Report Type: Spontaneous
  Country: US (occurrence: US)
  Receive Date: 20230328
  Receipt Date: 20230328
  Transmission Date: 20230417
  Serious: No
  Sender: FDA-Public Use
  Company Number: US-CTI BIOPHARMA-2022US03262

PATIENT

DRUGS (1)
  1. VONJO [Suspect]
     Active Substance: PACRITINIB
     Indication: Myelofibrosis
     Dosage: 200 MG, BID
     Route: 048
     Dates: start: 20221130

REACTIONS (9)
  - Therapy interrupted [Unknown]
  - Sleep disorder [Unknown]
  - SARS-CoV-2 test positive [Unknown]
  - Illness [Unknown]
  - Rash [Unknown]
  - Pneumonia [Unknown]
  - Nasopharyngitis [Unknown]
  - Peripheral swelling [Unknown]
  - Oedema [Unknown]
